FAERS Safety Report 23994222 (Version 4)
Quarter: 2024Q3

REPORT INFORMATION
  Report Type: Report from Study
  Country: US (occurrence: US)
  Receive Date: 20240620
  Receipt Date: 20240918
  Transmission Date: 20241017
  Serious: Yes (Other)
  Sender: ABBVIE
  Company Number: US-ABBVIE-5803968

PATIENT
  Sex: Female

DRUGS (2)
  1. RINVOQ [Suspect]
     Active Substance: UPADACITINIB
     Indication: Rheumatoid arthritis
     Route: 048
     Dates: start: 20240412
  2. GLEEVEC [Concomitant]
     Active Substance: IMATINIB MESYLATE
     Indication: Product used for unknown indication

REACTIONS (11)
  - Thyroid cancer [Recovering/Resolving]
  - Wrong technique in product usage process [Unknown]
  - Respiratory disorder [Unknown]
  - Oxygen saturation decreased [Unknown]
  - Pulmonary mass [Unknown]
  - Nasopharyngitis [Recovering/Resolving]
  - Tooth extraction [Unknown]
  - Sinusitis [Recovering/Resolving]
  - Dental restoration failure [Unknown]
  - Gingival disorder [Unknown]
  - Bone disorder [Unknown]

NARRATIVE: CASE EVENT DATE: 20240101
